FAERS Safety Report 8216869-9 (Version None)
Quarter: 2012Q1

REPORT INFORMATION
  Report Type: 
  Country: None (occurrence: None)
  Receive Date: 20120316
  Receipt Date: 20120309
  Transmission Date: 20120608
  Serious: Yes (Disabling)
  Sender: FDA-Public Use
  Company Number: CA-ASTRAZENECA-2012SE11490

PATIENT
  Age: 58 Year
  Sex: Female

DRUGS (1)
  1. PRILOSEC [Suspect]
     Indication: HYPERCHLORHYDRIA
     Route: 048

REACTIONS (2)
  - INAPPROPRIATE SCHEDULE OF DRUG ADMINISTRATION [None]
  - DYSPHAGIA [None]
